FAERS Safety Report 25617369 (Version 1)
Quarter: 2025Q3

REPORT INFORMATION
  Report Type: Spontaneous
  Country: CN (occurrence: CN)
  Receive Date: 20250729
  Receipt Date: 20250729
  Transmission Date: 20251020
  Serious: Yes (Other)
  Sender: BAYER HEALTHCARE PHARMACEUTICALS INC.
  Company Number: CN-BAYER-2025A100700

PATIENT
  Age: 55 Year
  Sex: Female
  Weight: 63 kg

DRUGS (2)
  1. ULTRAVIST [Suspect]
     Active Substance: IOPROMIDE
     Indication: Computerised tomogram
     Route: 042
     Dates: start: 20250722, end: 20250722
  2. ULTRAVIST [Suspect]
     Active Substance: IOPROMIDE
     Indication: Chest pain

REACTIONS (5)
  - Contrast media allergy [Recovering/Resolving]
  - Nasal obstruction [Recovering/Resolving]
  - Vocal cord paralysis [Recovering/Resolving]
  - Blood pressure systolic increased [None]
  - Respiratory rate increased [None]

NARRATIVE: CASE EVENT DATE: 20250722
